FAERS Safety Report 25006317 (Version 1)
Quarter: 2025Q1

REPORT INFORMATION
  Report Type: Spontaneous
  Country: US (occurrence: US)
  Receive Date: 20250224
  Receipt Date: 20250224
  Transmission Date: 20250409
  Serious: No
  Sender: AMGEN
  Company Number: US-AMGEN-USASP2025032292

PATIENT
  Age: 68 Year
  Sex: Female

DRUGS (2)
  1. REPATHA [Suspect]
     Active Substance: EVOLOCUMAB
     Indication: Product used for unknown indication
     Dosage: 140 MILLIGRAM, Q2WK
     Route: 058
  2. REPATHA [Suspect]
     Active Substance: EVOLOCUMAB
     Dosage: 140 MILLIGRAM, Q2WK (THERAPY RESTARTED)
     Route: 058

REACTIONS (6)
  - Rash [Unknown]
  - Injection site bruising [Unknown]
  - Nasopharyngitis [Unknown]
  - Malaise [Unknown]
  - Device difficult to use [Unknown]
  - Product administration error [Unknown]

NARRATIVE: CASE EVENT DATE: 20250214
